FAERS Safety Report 6875611-4 (Version None)
Quarter: 2010Q3

REPORT INFORMATION
  Report Type: 
  Country: None (occurrence: None)
  Receive Date: 20100727
  Receipt Date: 20100719
  Transmission Date: 20110219
  Serious: Yes (Death)
  Sender: FDA-Public Use
  Company Number: US-JNJFOC-20091202714

PATIENT
  Sex: Female

DRUGS (2)
  1. DURAGESIC-100 [Suspect]
     Indication: PAIN MANAGEMENT
     Route: 062
  2. ACTIQ [Suspect]
     Indication: PAIN MANAGEMENT
     Route: 048

REACTIONS (3)
  - AORTIC VALVE REPLACEMENT [None]
  - DRUG TOXICITY [None]
  - HEART VALVE INCOMPETENCE [None]
